FAERS Safety Report 7764805-1 (Version None)
Quarter: 2011Q3

REPORT INFORMATION
  Report Type: 
  Country: None (occurrence: None)
  Receive Date: 20110921
  Receipt Date: 20110912
  Transmission Date: 20111222
  Serious: Yes (Other)
  Sender: FDA-Public Use
  Company Number: US-BAYER-2011-088148

PATIENT
  Age: 26 Year
  Sex: Female
  Weight: 98 kg

DRUGS (5)
  1. YAZ [Suspect]
     Indication: MENSTRUATION IRREGULAR
  2. YAZ [Suspect]
     Indication: CONTRACEPTION
     Dosage: UNK
     Dates: start: 20090201, end: 20090801
  3. YASMIN [Suspect]
     Indication: CONTRACEPTION
     Dosage: UNK
     Dates: start: 20090201, end: 20090801
  4. YASMIN [Suspect]
     Indication: MENSTRUATION IRREGULAR
  5. LEVOTHYROXINE SODIUM [Concomitant]
     Dosage: UNK
     Route: 048
     Dates: start: 20090301

REACTIONS (6)
  - MENORRHAGIA [None]
  - MENSTRUAL DISORDER [None]
  - TRANSFUSION [None]
  - JAUNDICE [None]
  - CHOLELITHIASIS [None]
  - GALLBLADDER DISORDER [None]
